FAERS Safety Report 22621137 (Version 1)
Quarter: 2023Q2

REPORT INFORMATION
  Report Type: Spontaneous
  Country: CN (occurrence: CN)
  Receive Date: 20230620
  Receipt Date: 20230620
  Transmission Date: 20230722
  Serious: Yes (Other)
  Sender: FDA-Public Use
  Company Number: CN-SUN PHARMACEUTICAL INDUSTRIES LTD-2023R1-395391

PATIENT
  Age: 47 Year
  Sex: Female

DRUGS (1)
  1. TEMOZOLOMIDE [Suspect]
     Active Substance: TEMOZOLOMIDE
     Indication: Astrocytoma
     Dosage: 75 MILLIGRAM/SQ. METER, DAILY
     Route: 065

REACTIONS (3)
  - Disease progression [Unknown]
  - Hypersomnia [Unknown]
  - Hemiparesis [Unknown]
